FAERS Safety Report 8045151-8 (Version None)
Quarter: 2012Q1

REPORT INFORMATION
  Report Type: 
  Country: None (occurrence: None)
  Receive Date: 20120113
  Receipt Date: 20110921
  Transmission Date: 20120608
  Serious: Yes (Other)
  Sender: FDA-Public Use
  Company Number: US-ASTRAZENECA-2011SE57543

PATIENT

DRUGS (4)
  1. PROZAC [Concomitant]
     Indication: DEPRESSION
  2. VYVANSE [Concomitant]
  3. LITHIUM CARBONATE [Concomitant]
     Indication: BIPOLAR DISORDER
  4. SEROQUEL XR [Suspect]
     Indication: BIPOLAR DISORDER
     Route: 048

REACTIONS (1)
  - INTESTINAL OBSTRUCTION [None]
